FAERS Safety Report 22313306 (Version 4)
Quarter: 2024Q3

REPORT INFORMATION
  Report Type: Spontaneous
  Country: US (occurrence: US)
  Receive Date: 20230512
  Receipt Date: 20240731
  Transmission Date: 20241016
  Serious: Yes (Hospitalization, Other)
  Sender: PFIZER
  Company Number: US-PFIZER INC-PV202300084867

PATIENT
  Age: 69 Year
  Sex: Female
  Weight: 69.2 kg

DRUGS (12)
  1. IBRANCE [Suspect]
     Active Substance: PALBOCICLIB
     Indication: Breast cancer metastatic
     Dosage: TAKE 1 EACH EVENING WITH MEAL, ALONG WITH LETROZOLE
     Dates: start: 201510
  2. IBRANCE [Suspect]
     Active Substance: PALBOCICLIB
     Dosage: 125 MG, CYCLIC (125 MG PO DAILY 21 DAYS ON 7 DAYS OFF)
     Route: 048
     Dates: start: 201611
  3. ATIVAN [Concomitant]
     Active Substance: LORAZEPAM
     Indication: Sleep disorder
     Dosage: 1 AND HALF MG
     Dates: start: 2015
  4. CITALOPRAM [Concomitant]
     Active Substance: CITALOPRAM\CITALOPRAM HYDROBROMIDE
     Indication: Depression
     Dosage: 20MG EVERY MORNING
     Dates: start: 2015
  5. EXEMESTANE [Concomitant]
     Active Substance: EXEMESTANE
     Indication: Breast cancer metastatic
     Dosage: 25 MG, DAILY
     Route: 048
     Dates: start: 201510
  6. EXEMESTANE [Concomitant]
     Active Substance: EXEMESTANE
     Indication: Bone cancer metastatic
  7. EXEMESTANE [Concomitant]
     Active Substance: EXEMESTANE
     Indication: Metastatic lymphoma
  8. EXEMESTANE [Concomitant]
     Active Substance: EXEMESTANE
     Indication: Hepatic cancer metastatic
  9. LETROZOLE [Concomitant]
     Active Substance: LETROZOLE
     Indication: Breast cancer metastatic
     Dosage: UNK, DAILY
     Dates: start: 201510
  10. LETROZOLE [Concomitant]
     Active Substance: LETROZOLE
     Indication: Hepatic cancer metastatic
  11. LETROZOLE [Concomitant]
     Active Substance: LETROZOLE
     Indication: Bone cancer metastatic
  12. LETROZOLE [Concomitant]
     Active Substance: LETROZOLE
     Indication: Metastatic lymphoma

REACTIONS (5)
  - Upper limb fracture [Unknown]
  - Blindness [Unknown]
  - Neoplasm progression [Unknown]
  - Asthenia [Unknown]
  - Crying [Unknown]
